FAERS Safety Report 15098283 (Version 2)
Quarter: 2018Q3

REPORT INFORMATION
  Report Type: Spontaneous
  Country: ES (occurrence: ES)
  Receive Date: 20180702
  Receipt Date: 20180920
  Transmission Date: 20181010
  Serious: Yes (Other)
  Sender: FDA-Public Use
  Company Number: PHHY2018ES034279

PATIENT
  Age: 51 Year
  Sex: Male

DRUGS (3)
  1. RITUXIMAB. [Interacting]
     Active Substance: RITUXIMAB
     Indication: IMMUNE THROMBOCYTOPENIC PURPURA
     Dosage: 375 MG/M2, QW
     Route: 042
  2. ROMIPLOSTIM [Interacting]
     Active Substance: ROMIPLOSTIM
     Indication: IMMUNE THROMBOCYTOPENIC PURPURA
     Route: 065
  3. PREDNISONE. [Suspect]
     Active Substance: PREDNISONE
     Indication: IMMUNE THROMBOCYTOPENIC PURPURA
     Route: 065

REACTIONS (5)
  - Drug interaction [Unknown]
  - Leukocytosis [Recovered/Resolved]
  - Candida infection [Recovered/Resolved]
  - Intentional product use issue [Unknown]
  - Off label use [Unknown]
